FAERS Safety Report 10707757 (Version 2)
Quarter: 2015Q1

REPORT INFORMATION
  Report Type: Report from Study
  Country: PL (occurrence: PL)
  Receive Date: 20150113
  Receipt Date: 20150116
  Transmission Date: 20150721
  Serious: Yes (Hospitalization, Disabling)
  Sender: FDA-Public Use
  Company Number: PL-ASTRAZENECA-2015SE01900

PATIENT
  Age: 27512 Day
  Sex: Female

DRUGS (8)
  1. EFFOX [Concomitant]
     Active Substance: ISOSORBIDE MONONITRATE
     Indication: MYOCARDIAL ISCHAEMIA
     Route: 048
  2. BISOPROMERCK [Concomitant]
     Active Substance: BISOPROLOL FUMARATE
     Indication: HYPERTENSION
     Route: 048
  3. ASPARAN MAX [Concomitant]
     Indication: HYPOKALAEMIA
     Route: 048
     Dates: start: 20141126
  4. CALPEROS [Concomitant]
     Active Substance: CALCIUM CARBONATE
     Indication: HYPOKALAEMIA
     Route: 048
     Dates: start: 20131222
  5. EUTHYROX [Concomitant]
     Active Substance: LEVOTHYROXINE SODIUM
     Indication: HYPOTHYROIDISM
     Route: 048
  6. MOISIDOMINUM [Concomitant]
     Indication: MYOCARDIAL ISCHAEMIA
     Route: 048
  7. FURAGIN [Concomitant]
     Indication: URINARY TRACT INFECTION
     Route: 048
     Dates: start: 20141210
  8. VANDETANIB. [Suspect]
     Active Substance: VANDETANIB
     Indication: THYROID CANCER METASTATIC
     Route: 048
     Dates: start: 20141126

REACTIONS (2)
  - Cerebrovascular accident [Not Recovered/Not Resolved]
  - Lung infection [Not Recovered/Not Resolved]

NARRATIVE: CASE EVENT DATE: 20150106
